FAERS Safety Report 10279679 (Version 1)
Quarter: 2014Q3

REPORT INFORMATION
  Report Type: Spontaneous
  Country: FR (occurrence: None)
  Receive Date: 20140702
  Receipt Date: 20140702
  Transmission Date: 20150326
  Serious: Yes (Hospitalization)
  Sender: FDA-Public Use
  Company Number: 2411515

PATIENT
  Age: 33 Year
  Sex: Female

DRUGS (1)
  1. PAMIDRONIC ACID [Suspect]
     Active Substance: PAMIDRONIC ACID
     Indication: ARTHRALGIA
     Dosage: 60 MG (1DAY)?02/21/2014 04:08 PM - 02/22/2014 ( 2 DAYS ) ?(NOT OTHERWISE SPECIFIED)
     Route: 042
     Dates: start: 20140221, end: 20140222

REACTIONS (2)
  - Phlebitis superficial [None]
  - Venous thrombosis limb [None]

NARRATIVE: CASE EVENT DATE: 20140226
